FAERS Safety Report 4623025-X (Version None)
Quarter: 2005Q1

REPORT INFORMATION
  Report Type: 
  Country: None (occurrence: None)
  Receive Date: 20050329
  Receipt Date: 20050317
  Transmission Date: 20050727
  Serious: Yes (Hospitalization)
  Sender: FDA-Public Use
  Company Number: 200510759GDS

PATIENT
  Age: 54 Year
  Sex: Female

DRUGS (6)
  1. ADALAT [Suspect]
     Dosage: 30 MG, TOTAL DAILY, ORAL
     Route: 048
  2. ACETYL SALICYLIC ACID USP BAT [Suspect]
     Dosage: 325 MG, TOTAL DAILY, ORAL
     Route: 048
     Dates: start: 20050201
  3. VINPOCETINE [Suspect]
     Dosage: 10 MG, TOTAL DAILY, ORAL
     Route: 048
     Dates: start: 20050101
  4. FLUVOXAMINE MALEATE [Suspect]
     Dosage: 50 MG, TOTAL DAILY, ORAL
     Route: 048
     Dates: start: 20050101
  5. SIMVASTATIN [Suspect]
     Dosage: 20 MG, TOTAL DAILY, ORAL
     Route: 048
     Dates: start: 20050201
  6. OMEPRAZOLE [Suspect]
     Dosage: 20 MG, TOTAL DAILY, ORAL
     Route: 048

REACTIONS (5)
  - DIZZINESS [None]
  - FEELING ABNORMAL [None]
  - HYPERTENSION [None]
  - MALAISE [None]
  - TACHYCARDIA [None]
